FAERS Safety Report 4399676-7 (Version None)
Quarter: 2004Q3

REPORT INFORMATION
  Report Type: 
  Country: None (occurrence: None)
  Receive Date: 20040716
  Receipt Date: 20040618
  Transmission Date: 20050211
  Serious: Yes (Life-Threatening)
  Sender: FDA-Public Use
  Company Number: JP-ROCHE-371232

PATIENT
  Age: 66 Year
  Sex: Female

DRUGS (2)
  1. TORSEMIDE [Suspect]
     Route: 048
     Dates: start: 20040527
  2. INSULIN [Concomitant]

REACTIONS (1)
  - CARDIO-RESPIRATORY ARREST [None]
